FAERS Safety Report 17195028 (Version 1)
Quarter: 2019Q4

REPORT INFORMATION
  Report Type: Spontaneous
  Country: KR (occurrence: KR)
  Receive Date: 20191224
  Receipt Date: 20191224
  Transmission Date: 20200122
  Serious: Yes (Other)
  Sender: FDA-Public Use
  Company Number: KR-CHEPLA-C20193467_05

PATIENT
  Age: 3 Year

DRUGS (13)
  1. THIOTEPA. [Suspect]
     Active Substance: THIOTEPA
     Indication: NEUROBLASTOMA RECURRENT
     Dosage: HDCT2 REGIMEN, SECOND HIGH-DOSE CHEMOTHERAPY MIBG-TM
     Route: 065
  2. METHOTREXATE. [Suspect]
     Active Substance: METHOTREXATE
     Indication: PROPHYLAXIS AGAINST GRAFT VERSUS HOST DISEASE
     Dosage: ON DAY 1
     Route: 042
  3. CYCLOPHOSPHAMIDE. [Suspect]
     Active Substance: CYCLOPHOSPHAMIDE
     Indication: NEUROBLASTOMA RECURRENT
     Dosage: HDCT1, FIRST HIGH-DOSE CHEMOTHERAPY CEC
     Route: 065
  4. ETOPOSIDE. [Suspect]
     Active Substance: ETOPOSIDE
     Indication: NEUROBLASTOMA RECURRENT
     Dosage: HDCT1, FIRST HIGH-DOSE CHEMOTHERAPY CEC
     Route: 065
  5. ACYCLOVIR. [Suspect]
     Active Substance: ACYCLOVIR
     Indication: ANTIVIRAL PROPHYLAXIS
     Dosage: BY DAY 30
     Route: 065
  6. TRIMETHOPRIM-SULFAMETHOXAZOLE [Suspect]
     Active Substance: SULFAMETHOXAZOLE\TRIMETHOPRIM
     Indication: ANTIBIOTIC PROPHYLAXIS
     Dosage: TO DAY 180 OR UNTIL IMMUNOSUPPRESSANT DISCONTINUATION
     Route: 065
  7. GANCICLOVIR. [Suspect]
     Active Substance: GANCICLOVIR
     Indication: ANTIVIRAL PROPHYLAXIS
     Route: 065
  8. METHOTREXATE. [Suspect]
     Active Substance: METHOTREXATE
     Indication: PROPHYLAXIS AGAINST GRAFT VERSUS HOST DISEASE
     Dosage: ON DAYS 3 AND 6
     Route: 042
  9. CYCLOSPORINE (CSA) [Suspect]
     Active Substance: CYCLOSPORINE
     Indication: PROPHYLAXIS AGAINST GRAFT VERSUS HOST DISEASE
     Dosage: FROM DAY -1 AT A DOSE ADJUSTED TO MAINTAIN BLOOD CONCENTRATION IN THE RANGE OF 150 TO 300 NG/ML
     Route: 042
  10. I-METAIODOBENZYLGUANIDINE [Suspect]
     Active Substance: IOBENGUANE
     Indication: NEUROBLASTOMA RECURRENT
     Dosage: HDCT2 REGIMEN, SECOND HIGH-DOSE CHEMOTHERAPY MIBG-TM
     Route: 065
  11. MELPHALAN. [Suspect]
     Active Substance: MELPHALAN
     Indication: NEUROBLASTOMA RECURRENT
     Dosage: HDCT2 REGIMEN, SECOND HIGH-DOSE CHEMOTHERAPY MIBG-TM
     Route: 065
  12. CARBOPLATIN. [Suspect]
     Active Substance: CARBOPLATIN
     Indication: NEUROBLASTOMA RECURRENT
     Dosage: HDCT1, FIRST HIGH-DOSE CHEMOTHERAPY CEC
     Route: 065
  13. RITUXIMAB. [Suspect]
     Active Substance: RITUXIMAB
     Indication: POST TRANSPLANT LYMPHOPROLIFERATIVE DISORDER
     Route: 065

REACTIONS (6)
  - Cytomegalovirus infection [Unknown]
  - Post transplant lymphoproliferative disorder [Recovering/Resolving]
  - Febrile neutropenia [Unknown]
  - Disease progression [Recovered/Resolved]
  - Graft versus host disease [Unknown]
  - BK virus infection [Unknown]
